FAERS Safety Report 5867388-6 (Version None)
Quarter: 2008Q3

REPORT INFORMATION
  Report Type: 
  Country: None (occurrence: None)
  Receive Date: 20080902
  Receipt Date: 20080828
  Transmission Date: 20090109
  Serious: Yes (Other)
  Sender: FDA-Public Use
  Company Number: PHHY2008DE13121

PATIENT
  Sex: Male
  Weight: 122 kg

DRUGS (1)
  1. EUCREAS [Suspect]
     Dosage: 1 DF, BID
     Route: 048
     Dates: start: 20080525, end: 20080531

REACTIONS (10)
  - ABDOMINAL PAIN [None]
  - BURNING SENSATION [None]
  - CHILLS [None]
  - CHROMATURIA [None]
  - DIARRHOEA [None]
  - HYPERHIDROSIS [None]
  - PALPITATIONS [None]
  - RENAL COLIC [None]
  - RENAL PAIN [None]
  - TACHYCARDIA [None]
